FAERS Safety Report 4978597-2 (Version None)
Quarter: 2006Q2

REPORT INFORMATION
  Report Type: 
  Country: None (occurrence: None)
  Receive Date: 20060420
  Receipt Date: 20050930
  Transmission Date: 20061013
  Serious: Yes (Hospitalization)
  Sender: FDA-Public Use
  Company Number: US-MERCK-0510USA02045

PATIENT
  Age: 75 Year
  Sex: Male
  Weight: 100 kg

DRUGS (8)
  1. VIOXX [Suspect]
     Indication: ARTHRALGIA
     Route: 048
     Dates: start: 20000504, end: 20021125
  2. ASPIRIN [Concomitant]
     Route: 048
  3. COUMADIN [Concomitant]
     Route: 065
  4. PROSCAR [Concomitant]
     Route: 048
  5. VASOTEC [Concomitant]
     Route: 048
  6. TENORMIN [Concomitant]
     Route: 065
  7. DIURIL [Concomitant]
     Route: 065
     Dates: end: 20020423
  8. METAMUCIL [Concomitant]
     Route: 065

REACTIONS (20)
  - ANGINA PECTORIS [None]
  - AORTIC ANEURYSM [None]
  - ATRIAL FIBRILLATION [None]
  - BENIGN PROSTATIC HYPERPLASIA [None]
  - CARDIAC DISORDER [None]
  - CEREBROVASCULAR ACCIDENT [None]
  - CORONARY ARTERY DISEASE [None]
  - DEPRESSION [None]
  - DIVERTICULUM [None]
  - GOUT [None]
  - HYPERTENSION [None]
  - INGUINAL HERNIA [None]
  - INGUINAL HERNIA REPAIR [None]
  - LUNG DISORDER [None]
  - PERIPHERAL VASCULAR DISORDER [None]
  - RENAL FAILURE [None]
  - RENAL FAILURE CHRONIC [None]
  - SLEEP APNOEA SYNDROME [None]
  - SPLENOMEGALY [None]
  - VENTRICULAR HYPERTROPHY [None]
